FAERS Safety Report 5033846-X (Version None)
Quarter: 2006Q2

REPORT INFORMATION
  Report Type: 
  Country: None (occurrence: None)
  Receive Date: 20060623
  Receipt Date: 20060616
  Transmission Date: 20061013
  Serious: Yes (Hospitalization)
  Sender: FDA-Public Use
  Company Number: 2006PK01323

PATIENT
  Age: 22517 Day
  Sex: Female

DRUGS (2)
  1. TAMOXIFEN [Suspect]
     Indication: BREAST CANCER
     Route: 048
     Dates: start: 20030521
  2. L-THYROXIN 75 [Concomitant]
     Indication: HYPOTHYROIDISM

REACTIONS (1)
  - CHOLELITHIASIS [None]
